FAERS Safety Report 13369227 (Version 7)
Quarter: 2017Q3

REPORT INFORMATION
  Report Type: Report from Study
  Country: AU (occurrence: AU)
  Receive Date: 20170324
  Receipt Date: 20170724
  Transmission Date: 20171127
  Serious: Yes (Hospitalization, Disabling, Other)
  Sender: FDA-Public Use
  Company Number: PHHY2017AU043246

PATIENT
  Age: 86 Year
  Sex: Female

DRUGS (6)
  1. CREON [Suspect]
     Active Substance: PANCRELIPASE AMYLASE\PANCRELIPASE LIPASE\PANCRELIPASE PROTEASE
     Indication: PANCREATIC FAILURE
     Dosage: 10000 UNITS, UNK
     Route: 048
  2. SANDOSTATIN LAR DEPOT [Suspect]
     Active Substance: OCTREOTIDE ACETATE
     Indication: ACROMEGALY
     Dosage: 30 MG, UNK
     Route: 030
     Dates: start: 200407
  3. BUPRENORPHINE. [Suspect]
     Active Substance: BUPRENORPHINE
     Indication: PAIN
     Dosage: 10 MCG/D
     Route: 065
  4. THYROXINE [Suspect]
     Active Substance: LEVOTHYROXINE
     Indication: HYPOTHYROIDISM
     Dosage: 50 MG, UNK
     Route: 048
  5. WARFARIN [Suspect]
     Active Substance: WARFARIN
     Indication: PULMONARY EMBOLISM
  6. WARFARIN [Suspect]
     Active Substance: WARFARIN
     Indication: EMBOLISM VENOUS
     Dosage: 4 MG, UNK
     Route: 048

REACTIONS (26)
  - Encephalopathy [Unknown]
  - Somnolence [Unknown]
  - Muscle spasms [Unknown]
  - Oesophagitis [Unknown]
  - Confusional state [Unknown]
  - Meningioma [Unknown]
  - Postictal state [Unknown]
  - Angiopathy [Unknown]
  - Loss of consciousness [Unknown]
  - Dyskinesia [Unknown]
  - Constipation [Recovering/Resolving]
  - Nausea [Unknown]
  - Gastritis erosive [Unknown]
  - Delirium [Unknown]
  - Musculoskeletal stiffness [Unknown]
  - Muscle rigidity [Unknown]
  - Vascular dementia [Not Recovered/Not Resolved]
  - Fall [Not Recovered/Not Resolved]
  - Tonic convulsion [Recovered/Resolved]
  - Mixed dementia [Not Recovered/Not Resolved]
  - Depression [Unknown]
  - Atrioventricular block first degree [Unknown]
  - Lethargy [Unknown]
  - Irritability [Unknown]
  - Sleep disorder [Unknown]
  - Pancreatic cyst [Unknown]

NARRATIVE: CASE EVENT DATE: 2013
